FAERS Safety Report 26154500 (Version 1)
Quarter: 2025Q4

REPORT INFORMATION
  Report Type: Report from Study
  Country: US (occurrence: US)
  Receive Date: 20251215
  Receipt Date: 20251215
  Transmission Date: 20260118
  Serious: Yes (Hospitalization)
  Sender: JOHNSON AND JOHNSON
  Company Number: US-JNJFOC-20251213171

PATIENT
  Age: 6 Decade
  Sex: Male

DRUGS (3)
  1. SPRAVATO [Suspect]
     Active Substance: ESKETAMINE
     Indication: Depression
     Dosage: ?56 MG, 1 TOTAL DOSES?
     Route: 045
     Dates: start: 20250509, end: 20250509
  2. SPRAVATO [Suspect]
     Active Substance: ESKETAMINE
     Dosage: ?84 MG, 5 TOTAL DOSES?
     Route: 045
     Dates: start: 20250513, end: 20250527
  3. SPRAVATO [Suspect]
     Active Substance: ESKETAMINE
     Dosage: ?28 MG, 1 TOTAL DOSES?
     Route: 045
     Dates: start: 20250507, end: 20250507

REACTIONS (1)
  - Hospitalisation [Recovered/Resolved]

NARRATIVE: CASE EVENT DATE: 20250101
